FAERS Safety Report 6326299-2 (Version None)
Quarter: 2009Q3

REPORT INFORMATION
  Report Type: 
  Country: None (occurrence: None)
  Receive Date: 20090820
  Receipt Date: 20090811
  Transmission Date: 20100115
  Serious: Yes (Death)
  Sender: FDA-Public Use
  Company Number: LIT-09-0015-W

PATIENT

DRUGS (1)
  1. ENALAPRIL MALEATE TABLETS (WOCKHARDT) [Suspect]
     Indication: TYPE 1 DIABETES MELLITUS
     Dosage: 20MG DAILY

REACTIONS (1)
  - NO ADVERSE EVENT [None]
